FAERS Safety Report 8773047 (Version 1)
Quarter: 2012Q4

REPORT INFORMATION
  Report Type: 
  Country: NO (occurrence: NO)
  Receive Date: 20120907
  Receipt Date: 20120907
  Transmission Date: 20130627
  Serious: Yes (Hospitalization)
  Sender: FDA-Public Use
  Company Number: NO-ABBOTT-12P-122-0973792-00

PATIENT
  Sex: Male

DRUGS (2)
  1. HUMIRA 40 MG/ 0.8 ML PRE-FILLED SYRINGE [Suspect]
     Indication: CROHN^S DISEASE
     Dates: start: 2006, end: 2009
  2. HUMIRA 40 MG/ 0.8 ML PRE-FILLED SYRINGE [Suspect]
     Dates: start: 2010, end: 201204

REACTIONS (6)
  - Intestinal perforation [Unknown]
  - Abdominal pain upper [Unknown]
  - Faecal calprotectin [Unknown]
  - Cutaneous tuberculosis [Recovered/Resolved]
  - Drug effect decreased [Unknown]
  - Inflammation [Unknown]
